FAERS Safety Report 7240995-4 (Version None)
Quarter: 2011Q1

REPORT INFORMATION
  Report Type: 
  Country: None (occurrence: None)
  Receive Date: 20110124
  Receipt Date: 20110111
  Transmission Date: 20110831
  Serious: Yes (Other)
  Sender: FDA-Public Use
  Company Number: GB-NAPPMUNDI-GBR-2011-0007599

PATIENT
  Age: 50 Year
  Sex: Female

DRUGS (3)
  1. OXYCODONE HCL [Suspect]
     Dosage: 120 MG, Q24H
     Route: 058
  2. OXYCODONE HCL [Suspect]
     Indication: PAIN
     Dosage: UNK MG, UNK
     Route: 048
  3. OXYCODONE HCL [Suspect]
     Dosage: 160 MG, UNK
     Route: 058

REACTIONS (5)
  - GENERAL PHYSICAL HEALTH DETERIORATION [None]
  - TOXICITY TO VARIOUS AGENTS [None]
  - WITHDRAWAL SYNDROME [None]
  - RENAL IMPAIRMENT [None]
  - MALAISE [None]
